FAERS Safety Report 19746037 (Version 2)
Quarter: 2021Q3

REPORT INFORMATION
  Report Type: Other
  Country: US (occurrence: US)
  Receive Date: 20210825
  Receipt Date: 20210830
  Transmission Date: 20211014
  Serious: Yes (Other)
  Sender: FDA-Public Use
  Company Number: US-ROCHE-2894013

PATIENT
  Sex: Female

DRUGS (5)
  1. ACTEMRA [Suspect]
     Active Substance: TOCILIZUMAB
  2. CLINDAMYCIN. [Concomitant]
     Active Substance: CLINDAMYCIN
  3. ACTEMRA [Suspect]
     Active Substance: TOCILIZUMAB
     Indication: RHEUMATOID ARTHRITIS
     Route: 058
  4. SIMVASTATIN. [Concomitant]
     Active Substance: SIMVASTATIN
  5. SULFASALAZINE. [Concomitant]
     Active Substance: SULFASALAZINE

REACTIONS (2)
  - Cataract [Unknown]
  - Blindness [Unknown]
